FAERS Safety Report 18438936 (Version 2)
Quarter: 2021Q1

REPORT INFORMATION
  Report Type: Spontaneous
  Country: US (occurrence: US)
  Receive Date: 20201029
  Receipt Date: 20210217
  Transmission Date: 20210419
  Serious: No
  Sender: FDA-Public Use
  Company Number: US-AKCEA THERAPEUTICS-2020IS001391

PATIENT
  Age: 64 Year
  Sex: Female

DRUGS (3)
  1. TEGSEDI [Suspect]
     Active Substance: INOTERSEN SODIUM
     Indication: HEREDITARY NEUROPATHIC AMYLOIDOSIS
     Route: 058
     Dates: end: 202011
  2. ISSD (INTEGRATED SYRINGE SAFETY DEVICE) [Suspect]
     Active Substance: DEVICE
  3. TEGSEDI [Suspect]
     Active Substance: INOTERSEN SODIUM
     Route: 058

REACTIONS (16)
  - Urine abnormality [Not Recovered/Not Resolved]
  - Bladder catheterisation [Unknown]
  - Urine leukocyte esterase positive [Not Recovered/Not Resolved]
  - Urinary casts [Unknown]
  - pH urine increased [Unknown]
  - Urinary occult blood positive [Not Recovered/Not Resolved]
  - Urinary sediment present [Not Recovered/Not Resolved]
  - Protein urine present [Unknown]
  - Crystal urine present [Unknown]
  - Red blood cells urine positive [Unknown]
  - Blood creatinine abnormal [Unknown]
  - Urine protein/creatinine ratio increased [Not Recovered/Not Resolved]
  - White blood cells urine positive [Not Recovered/Not Resolved]
  - Bacterial test positive [Not Recovered/Not Resolved]
  - Platelet count increased [Unknown]
  - Nitrite urine present [Unknown]

NARRATIVE: CASE EVENT DATE: 202009
